FAERS Safety Report 4454528-9 (Version None)
Quarter: 2004Q3

REPORT INFORMATION
  Report Type: 
  Country: None (occurrence: None)
  Receive Date: 20040921
  Receipt Date: 20040902
  Transmission Date: 20050211
  Serious: Yes (Other)
  Sender: FDA-Public Use
  Company Number: CA-JNJFOC-20040904666

PATIENT
  Age: 14 Year
  Sex: Female

DRUGS (6)
  1. FENTANYL [Suspect]
     Indication: DRUG USE FOR UNKNOWN INDICATION
  2. SENSORCAINE [Suspect]
     Indication: DRUG USE FOR UNKNOWN INDICATION
  3. XYLOCAIN 2% WITH EPINEPHRINE [Suspect]
  4. XYLOCAIN 2% WITH EPINEPHRINE [Suspect]
     Indication: DRUG USE FOR UNKNOWN INDICATION
  5. PROPOFOL [Concomitant]
  6. ROCURONIUM [Concomitant]

REACTIONS (3)
  - APNOEA [None]
  - LOSS OF CONSCIOUSNESS [None]
  - PUPIL FIXED [None]
